FAERS Safety Report 6857732-5 (Version None)
Quarter: 2010Q3

REPORT INFORMATION
  Report Type: 
  Country: None (occurrence: None)
  Receive Date: 20100719
  Receipt Date: 20080124
  Transmission Date: 20110219
  Serious: No
  Sender: FDA-Public Use
  Company Number: US-PFIZER INC-2008009391

PATIENT
  Age: 45 Year
  Sex: Male
  Weight: 97.727 kg

DRUGS (5)
  1. CHANTIX [Suspect]
     Indication: SMOKING CESSATION THERAPY
     Dates: start: 20071118
  2. CELEBREX [Concomitant]
  3. TALACEN [Concomitant]
  4. NEXIUM [Concomitant]
  5. TRICOR [Concomitant]

REACTIONS (2)
  - POOR QUALITY SLEEP [None]
  - SEXUAL DYSFUNCTION [None]
